FAERS Safety Report 8556525-0 (Version None)
Quarter: 2012Q2

REPORT INFORMATION
  Report Type: 
  Country: None (occurrence: None)
  Receive Date: 20120418
  Receipt Date: 20110307
  Transmission Date: 20120825
  Serious: Yes (Other)
  Sender: FDA-Public Use
  Company Number: PHHY2011US12626

PATIENT
  Age: 62 Year
  Sex: Female
  Weight: 75 kg

DRUGS (27)
  1. DIOVAN [Suspect]
     Indication: HYPERTENSION
     Dosage: , ORAL
     Route: 048
  2. XANAX [Concomitant]
  3. NITROGLYCERIN [Concomitant]
  4. LOPRESSOR [Concomitant]
  5. VITAMIN D [Concomitant]
  6. GLIPIZIDE [Suspect]
     Indication: DIABETES MELLITUS
     Dosage: 5 MG, UNK, ORAL
     Route: 048
     Dates: start: 20090101
  7. ATARAX [Concomitant]
  8. CALCIUM WITH VITAMIN D (CALCIUM PHOSPHATE, CALCIUM SODIUM LACTATE, ERG [Concomitant]
  9. CHANTIX [Suspect]
     Indication: SMOKING CESSATION THERAPY
     Dosage: 0.5 MG, UNK, ORAL 1 MG, UNK, ORAL 0.5 MG, UNK UNK 1 MG, UNK, ORAL
     Route: 048
     Dates: start: 20070101
  10. CHANTIX [Suspect]
     Indication: SMOKING CESSATION THERAPY
     Dosage: 0.5 MG, UNK, ORAL 1 MG, UNK, ORAL 0.5 MG, UNK UNK 1 MG, UNK, ORAL
     Route: 048
     Dates: start: 20080101
  11. CHANTIX [Suspect]
     Indication: SMOKING CESSATION THERAPY
     Dosage: 0.5 MG, UNK, ORAL 1 MG, UNK, ORAL 0.5 MG, UNK UNK 1 MG, UNK, ORAL
     Route: 048
     Dates: start: 20090101
  12. CHANTIX [Suspect]
     Indication: SMOKING CESSATION THERAPY
     Dosage: 0.5 MG, UNK, ORAL 1 MG, UNK, ORAL 0.5 MG, UNK UNK 1 MG, UNK, ORAL
     Route: 048
     Dates: end: 20090619
  13. CHANTIX [Suspect]
     Indication: SMOKING CESSATION THERAPY
     Dosage: 0.5 MG, UNK, ORAL 1 MG, UNK, ORAL 0.5 MG, UNK UNK 1 MG, UNK, ORAL
     Route: 048
     Dates: start: 20080101
  14. LASIX [Concomitant]
  15. NEURONTIN [Concomitant]
  16. DITROPAN [Concomitant]
  17. VITAMIN B (NO INGREDIENTS/SUBSTANCES) [Concomitant]
  18. CELEBREX [Suspect]
     Indication: OSTEOARTHRITIS
     Dosage: , ORAL
     Route: 048
  19. PRILOSEC [Concomitant]
  20. ACETYLSALICYLIC ACID (ACETYLSALICYLIC ACID), 81 MG [Concomitant]
  21. NOVOLOG [Suspect]
     Indication: DIABETES MELLITUS
     Dosage: UNK
     Dates: end: 20090101
  22. VASOTEC [Suspect]
     Indication: HYPERTENSION
     Dosage: , ORAL
     Route: 048
  23. LANTUS [Concomitant]
  24. ASCORBIC ACID [Concomitant]
  25. CELEXA [Concomitant]
  26. LOPERAMIDE HYDROCHLORIDE [Concomitant]
  27. VITAMIN B6 [Concomitant]

REACTIONS (17)
  - DECREASED APPETITE [None]
  - MUSCLE SPASMS [None]
  - DEPRESSION [None]
  - DRY SKIN [None]
  - STRESS [None]
  - HYPERSENSITIVITY [None]
  - HYPERTENSION [None]
  - VOMITING [None]
  - FRUSTRATION [None]
  - BLOOD GLUCOSE INCREASED [None]
  - SOMNOLENCE [None]
  - TREMOR [None]
  - DRUG HYPERSENSITIVITY [None]
  - BLOOD GLUCOSE DECREASED [None]
  - NAUSEA [None]
  - PRURITUS [None]
  - BLOOD IRON DECREASED [None]
